FAERS Safety Report 4289164-0 (Version None)
Quarter: 2004Q1

REPORT INFORMATION
  Report Type: 
  Country: None (occurrence: None)
  Receive Date: 20040206
  Receipt Date: 20040119
  Transmission Date: 20041129
  Serious: Yes (Other)
  Sender: FDA-Public Use
  Company Number: JP-JNJFOC-20040103678

PATIENT
  Age: 51 Year
  Sex: Female

DRUGS (9)
  1. REMICADE [Suspect]
     Indication: RHEUMATOID ARTHRITIS
     Dosage: , IN 1 AS NECESSARY, INTRAVENOUS DRIP
     Route: 041
  2. PREDNISOLONE [Suspect]
     Indication: RHEUMATOID ARTHRITIS
     Dosage: 10 MG, IN 1 DAY, ORAL
     Route: 048
     Dates: start: 20030814
  3. RHEUMATREX [Suspect]
     Indication: RHEUMATOID ARTHRITIS
     Dosage: , IN 1 DAY, ORAL
     Route: 048
     Dates: start: 20030828
  4. LOXONIN (LOXOPROFEN SODIUM) TABLETS [Suspect]
     Indication: RHEUMATOID ARTHRITIS
     Dosage: 180 MG, IN 1 DAY, ORAL
     Route: 048
     Dates: start: 20030828
  5. VOLTAREN [Suspect]
     Indication: RHEUMATOID ARTHRITIS
     Dosage: , IN 1 DAY, RECTAL
     Route: 054
     Dates: start: 20030828
  6. SELBEX (TEPRENONE) CAPSULES [Suspect]
     Indication: DRUG USE FOR UNKNOWN INDICATION
     Dosage: 150 MG, IN 1 DAY, ORAL
     Route: 048
     Dates: start: 20030828
  7. LEVOTHYROXINE SODIUM [Suspect]
     Indication: DRUG USE FOR UNKNOWN INDICATION
     Dosage: 100 UG, IN 1 DAY, ORAL
     Route: 048
     Dates: start: 20030926
  8. PROVERA [Suspect]
     Indication: DRUG USE FOR UNKNOWN INDICATION
     Dosage: 2.5 MG, IN 1 DAY, ORAL
     Route: 048
     Dates: start: 20030924
  9. PREMARIN [Suspect]
     Indication: DRUG USE FOR UNKNOWN INDICATION
     Dosage: 0.625 MG, IN 1 DAY, ORAL
     Route: 048
     Dates: start: 20030924

REACTIONS (14)
  - BLOOD ALBUMIN DECREASED [None]
  - BLOOD BETA-D-GLUCAN INCREASED [None]
  - BLOOD CREATINE PHOSPHOKINASE INCREASED [None]
  - BLOOD CREATININE DECREASED [None]
  - C-REACTIVE PROTEIN INCREASED [None]
  - DRUG INTERACTION [None]
  - FUNGAEMIA [None]
  - IMMUNOSUPPRESSION [None]
  - INFLAMMATION [None]
  - PERIANAL ABSCESS [None]
  - PHARYNGEAL ERYTHEMA [None]
  - PLATELET COUNT INCREASED [None]
  - PROTEIN TOTAL DECREASED [None]
  - PYREXIA [None]
